FAERS Safety Report 4984271-9 (Version None)
Quarter: 2006Q2

REPORT INFORMATION
  Report Type: 
  Country: None (occurrence: None)
  Receive Date: 20060420
  Receipt Date: 20060404
  Transmission Date: 20061013
  Serious: Yes (Life-Threatening)
  Sender: FDA-Public Use
  Company Number: DSA_27975_2006

PATIENT
  Age: 48 Year
  Sex: Male

DRUGS (2)
  1. ENALAPRIL MALEATE [Suspect]
     Dosage: 2.5 MG
  2. AMLODIPINE [Concomitant]

REACTIONS (2)
  - ANGIONEUROTIC OEDEMA [None]
  - DYSPHAGIA [None]
